FAERS Safety Report 11830400 (Version 4)
Quarter: 2016Q3

REPORT INFORMATION
  Report Type: Spontaneous
  Country: US (occurrence: US)
  Receive Date: 20151214
  Receipt Date: 20160907
  Transmission Date: 20161109
  Serious: Yes (Other)
  Sender: FDA-Public Use
  Company Number: US-JNJFOC-20151201394

PATIENT
  Sex: Female

DRUGS (16)
  1. LEVAQUIN [Suspect]
     Active Substance: LEVOFLOXACIN
     Indication: STAPHYLOCOCCAL INFECTION
     Route: 042
     Dates: start: 200505, end: 200511
  2. LEVAQUIN [Suspect]
     Active Substance: LEVOFLOXACIN
     Indication: SPLENIC RUPTURE
     Route: 042
     Dates: start: 200512
  3. LEVAQUIN [Suspect]
     Active Substance: LEVOFLOXACIN
     Indication: SPLENIC RUPTURE
     Route: 042
     Dates: start: 200505, end: 200511
  4. LEVAQUIN [Suspect]
     Active Substance: LEVOFLOXACIN
     Indication: PNEUMONIA
     Dosage: FOR 5 DAYS
     Route: 048
     Dates: start: 201101, end: 201101
  5. LEVAQUIN [Suspect]
     Active Substance: LEVOFLOXACIN
     Indication: PANCREATITIS
     Route: 042
     Dates: start: 200505, end: 200511
  6. LEVAQUIN [Suspect]
     Active Substance: LEVOFLOXACIN
     Indication: STAPHYLOCOCCAL INFECTION
     Route: 042
     Dates: start: 200512
  7. LEVAQUIN [Suspect]
     Active Substance: LEVOFLOXACIN
     Indication: STAPHYLOCOCCAL INFECTION
     Route: 042
     Dates: start: 200504
  8. LEVAQUIN [Suspect]
     Active Substance: LEVOFLOXACIN
     Indication: INTESTINAL OPERATION
     Route: 048
     Dates: start: 20050405
  9. LEVAQUIN [Suspect]
     Active Substance: LEVOFLOXACIN
     Indication: PNEUMONIA
     Route: 042
     Dates: start: 200504
  10. LEVAQUIN [Suspect]
     Active Substance: LEVOFLOXACIN
     Indication: PNEUMONIA
     Route: 042
     Dates: start: 200512
  11. LEVAQUIN [Suspect]
     Active Substance: LEVOFLOXACIN
     Indication: PANCREATITIS
     Route: 042
     Dates: start: 200504
  12. LEVAQUIN [Suspect]
     Active Substance: LEVOFLOXACIN
     Indication: PANCREATITIS
     Route: 042
     Dates: start: 200512
  13. LEVAQUIN [Suspect]
     Active Substance: LEVOFLOXACIN
     Indication: INTESTINAL OPERATION
     Dosage: FOR 5 DAYS
     Route: 048
     Dates: start: 201101, end: 201101
  14. LEVAQUIN [Suspect]
     Active Substance: LEVOFLOXACIN
     Indication: PNEUMONIA
     Route: 048
     Dates: start: 20050405
  15. LEVAQUIN [Suspect]
     Active Substance: LEVOFLOXACIN
     Indication: PNEUMONIA
     Route: 042
     Dates: start: 200505, end: 200511
  16. LEVAQUIN [Suspect]
     Active Substance: LEVOFLOXACIN
     Indication: SPLENIC RUPTURE
     Route: 042
     Dates: start: 200504

REACTIONS (1)
  - Neuropathy peripheral [Not Recovered/Not Resolved]

NARRATIVE: CASE EVENT DATE: 2005
